FAERS Safety Report 15166196 (Version 3)
Quarter: 2018Q3

REPORT INFORMATION
  Report Type: Report from Study
  Country: CA (occurrence: CA)
  Receive Date: 20180719
  Receipt Date: 20180922
  Transmission Date: 20181010
  Serious: Yes (Other)
  Sender: FDA-Public Use
  Company Number: CA-TAKEDA-2018TUS016460

PATIENT
  Age: 44 Year
  Sex: Male

DRUGS (2)
  1. PANTOLOC [Suspect]
     Active Substance: PANTOPRAZOLE SODIUM
     Indication: INTESTINAL OBSTRUCTION
     Dosage: UNK
     Route: 048
     Dates: start: 20180717, end: 20180717
  2. VEDOLIZUMAB [Suspect]
     Active Substance: VEDOLIZUMAB
     Indication: CROHN^S DISEASE
     Dosage: 300 MG, UNK
     Route: 042
     Dates: start: 20180424, end: 20180727

REACTIONS (5)
  - Vomiting [Recovered/Resolved]
  - Intestinal obstruction [Unknown]
  - Nausea [Unknown]
  - Abdominal pain [Recovered/Resolved]
  - Crohn^s disease [Not Recovered/Not Resolved]

NARRATIVE: CASE EVENT DATE: 2018
